FAERS Safety Report 7494285-5 (Version None)
Quarter: 2011Q2

REPORT INFORMATION
  Report Type: 
  Country: None (occurrence: None)
  Receive Date: 20110520
  Receipt Date: 20110506
  Transmission Date: 20111010
  Serious: Yes (Other)
  Sender: FDA-Public Use
  Company Number: KR-WATSON-2011-05541

PATIENT
  Age: 71 Year
  Sex: Male

DRUGS (2)
  1. METRONIDAZOLE [Suspect]
     Indication: ENTEROCOLITIS INFECTIOUS
     Dosage: UNK
     Route: 042
  2. METRONIDAZOLE [Suspect]
     Dosage: UNK
     Route: 048

REACTIONS (1)
  - ENCEPHALOPATHY [None]
